FAERS Safety Report 8316443-X (Version None)
Quarter: 2012Q2

REPORT INFORMATION
  Report Type: 
  Country: None (occurrence: None)
  Receive Date: 20120427
  Receipt Date: 20120420
  Transmission Date: 20120825
  Serious: Yes (Other)
  Sender: FDA-Public Use
  Company Number: US-TEVA-334296USA

PATIENT
  Sex: Male

DRUGS (8)
  1. CEFTRIAXONE [Concomitant]
     Dates: start: 20111028
  2. DOXYCYCLINE [Concomitant]
     Dates: start: 20111025
  3. PREDNISONE [Concomitant]
     Dates: start: 20111020
  4. METHYLPREDNISOLONE [Concomitant]
     Dates: start: 20111031
  5. INHALER (NOS) [Concomitant]
  6. LEVOFLOXACIN (LEVAQUIN) [Suspect]
     Dates: start: 20111025
  7. VALSARTAN [Concomitant]
  8. DEXAMETHASONE [Concomitant]
     Dates: start: 20111026

REACTIONS (23)
  - MOVEMENT DISORDER [None]
  - BLOOD PRESSURE INCREASED [None]
  - NIGHTMARE [None]
  - SCAR [None]
  - HEART RATE INCREASED [None]
  - INSOMNIA [None]
  - PAIN IN EXTREMITY [None]
  - ARTHRALGIA [None]
  - JOINT CREPITATION [None]
  - AMNESIA [None]
  - ROTATOR CUFF SYNDROME [None]
  - MYALGIA [None]
  - MUSCULOSKELETAL PAIN [None]
  - CONTUSION [None]
  - SKIN DISCOLOURATION [None]
  - BACK DISORDER [None]
  - MUSCULOSKELETAL STIFFNESS [None]
  - TENDON PAIN [None]
  - MUSCULOSKELETAL DEFORMITY [None]
  - THINKING ABNORMAL [None]
  - TENDON RUPTURE [None]
  - ACTIVITIES OF DAILY LIVING IMPAIRED [None]
  - MUSCULAR WEAKNESS [None]
